FAERS Safety Report 10034497 (Version 5)
Quarter: 2014Q2

REPORT INFORMATION
  Report Type: Spontaneous
  Country: AU (occurrence: AU)
  Receive Date: 20140325
  Receipt Date: 20140415
  Transmission Date: 20141212
  Serious: Yes (Hospitalization, Other)
  Sender: FDA-Public Use
  Company Number: AU-UCBSA-114139

PATIENT
  Age: 18 Year
  Sex: Female

DRUGS (7)
  1. CIMZIA [Suspect]
     Indication: RHEUMATOID ARTHRITIS
     Dosage: LOADING DOSE
     Route: 058
     Dates: start: 20140220, end: 20140306
  2. METHOTREXATE [Concomitant]
  3. SODIUM VALPROATE [Concomitant]
     Dosage: 400MG DAILY
  4. HYDROXYCHLOROQUINE [Concomitant]
     Dosage: 400MG DAILY
  5. THYROXINE [Concomitant]
     Dosage: 150MCG DAILY
  6. FOLIC ACID [Concomitant]
  7. CELEBREX [Concomitant]
     Dosage: WHEN REQUIRED

REACTIONS (4)
  - Vasculitis [Recovering/Resolving]
  - C-reactive protein increased [Unknown]
  - White blood cell count increased [Unknown]
  - Influenza like illness [Recovered/Resolved]
